FAERS Safety Report 23325294 (Version 1)
Quarter: 2023Q4

REPORT INFORMATION
  Report Type: Spontaneous
  Country: US (occurrence: US)
  Receive Date: 20231221
  Receipt Date: 20231221
  Transmission Date: 20240110
  Serious: Yes (Hospitalization)
  Sender: FDA-Public Use
  Company Number: US-BIOVITRUM-2023-US-020664

PATIENT
  Age: 3 Year
  Sex: Male

DRUGS (17)
  1. ANAKINRA [Suspect]
     Active Substance: ANAKINRA
     Indication: Autoinflammatory disease
     Dosage: 80 MG DAILY
     Dates: start: 20230216
  2. ANAKINRA [Suspect]
     Active Substance: ANAKINRA
     Dosage: 100 MG QD
  3. ANAKINRA [Suspect]
     Active Substance: ANAKINRA
     Dosage: 100 MG Q6,
     Dates: start: 20231018, end: 20231021
  4. EMAPALUMAB [Suspect]
     Active Substance: EMAPALUMAB
     Indication: Autoinflammatory disease
     Dosage: 10 MG/KG
  5. METHYLPREDNISOLONE [Suspect]
     Active Substance: METHYLPREDNISOLONE
     Indication: Product used for unknown indication
     Dosage: 10 MG/KG
     Route: 042
     Dates: start: 20230517
  6. METHYLPREDNISOLONE [Suspect]
     Active Substance: METHYLPREDNISOLONE
     Dosage: 30 MG/KG
     Route: 042
     Dates: start: 20231031
  7. METHYLPREDNISOLONE [Suspect]
     Active Substance: METHYLPREDNISOLONE
     Dosage: 30 MG/KG
     Route: 042
     Dates: start: 20231101
  8. METHYLPREDNISOLONE [Suspect]
     Active Substance: METHYLPREDNISOLONE
     Dosage: 14 MG/KG
     Route: 042
     Dates: start: 20231124
  9. METHYLPREDNISOLONE [Suspect]
     Active Substance: METHYLPREDNISOLONE
     Dosage: 14 MG/KG
     Route: 042
     Dates: start: 20231125
  10. METHYLPREDNISOLONE [Suspect]
     Active Substance: METHYLPREDNISOLONE
     Dosage: 4 MG/KG
     Route: 042
     Dates: start: 20231129
  11. METHYLPREDNISOLONE [Suspect]
     Active Substance: METHYLPREDNISOLONE
     Dosage: 2 MG/ KG BID
     Route: 042
  12. METHYLPREDNISOLONE [Suspect]
     Active Substance: METHYLPREDNISOLONE
     Dosage: 10 MG/KG
     Route: 042
     Dates: start: 20231030
  13. TOFACITINIB [Suspect]
     Active Substance: TOFACITINIB
     Indication: Product used for unknown indication
     Dates: start: 20230623
  14. BARICITINIB [Suspect]
     Active Substance: BARICITINIB
     Indication: Product used for unknown indication
     Dosage: 2 MG BID
  15. BARICITINIB [Suspect]
     Active Substance: BARICITINIB
     Dosage: 2 MG BID
     Dates: start: 20231129
  16. CYCLOSPORINE [Suspect]
     Active Substance: CYCLOSPORINE
     Indication: Product used for unknown indication
     Dosage: 1 MG/KG DIVIDED BID
     Dates: start: 20231029
  17. CYCLOSPORINE [Suspect]
     Active Substance: CYCLOSPORINE
     Dosage: 2 MG/KG DIVIDED BID
     Dates: start: 20231031

REACTIONS (4)
  - Autoinflammatory disease [Unknown]
  - Condition aggravated [Unknown]
  - Off label use [Unknown]
  - Infection [Unknown]
